FAERS Safety Report 10028031 (Version 5)
Quarter: 2014Q2

REPORT INFORMATION
  Report Type: Spontaneous
  Country: US (occurrence: US)
  Receive Date: 20140321
  Receipt Date: 20140516
  Transmission Date: 20141212
  Serious: Yes (Hospitalization)
  Sender: FDA-Public Use
  Company Number: US-BAXTER-2014BAX013603

PATIENT
  Sex: Male

DRUGS (1)
  1. DIANEAL LOW CALCIUM [Suspect]
     Indication: PERITONEAL DIALYSIS
     Route: 033
     Dates: start: 20131014

REACTIONS (8)
  - Poor peripheral circulation [Recovering/Resolving]
  - Localised infection [Recovering/Resolving]
  - Infection [Not Recovered/Not Resolved]
  - Renal failure [Unknown]
  - Multimorbidity [Unknown]
  - Loss of consciousness [Not Recovered/Not Resolved]
  - Sepsis [Not Recovered/Not Resolved]
  - Haematemesis [Unknown]
